FAERS Safety Report 21096922 (Version 2)
Quarter: 2022Q3

REPORT INFORMATION
  Report Type: Report from Study
  Country: US (occurrence: US)
  Receive Date: 20220718
  Receipt Date: 20220828
  Transmission Date: 20221026
  Serious: Yes (Hospitalization, Other)
  Sender: FDA-Public Use
  Company Number: US-BRISTOL-MYERS SQUIBB COMPANY-BMS-2022-039229

PATIENT
  Age: 63 Year
  Sex: Female
  Weight: 61.1 kg

DRUGS (1)
  1. NIVOLUMAB [Suspect]
     Active Substance: NIVOLUMAB
     Indication: Small cell lung cancer recurrent
     Route: 042

REACTIONS (1)
  - Pericardial effusion [Recovered/Resolved]

NARRATIVE: CASE EVENT DATE: 20220310
